FAERS Safety Report 9757858 (Version 1)
Quarter: 2013Q4

REPORT INFORMATION
  Report Type: Spontaneous
  Country: FR (occurrence: FR)
  Receive Date: 20131216
  Receipt Date: 20131216
  Transmission Date: 20140711
  Serious: Yes (Other)
  Sender: FDA-Public Use
  Company Number: FR-AMGEN-FRASP2013087755

PATIENT
  Age: 62 Year
  Sex: Male

DRUGS (10)
  1. ENBREL [Suspect]
     Indication: PRODUCT USED FOR UNKNOWN INDICATION
     Dosage: UNK
     Route: 065
  2. PLAVIX [Concomitant]
     Dosage: UNK
  3. APROVEL [Concomitant]
     Dosage: UNK
  4. LOXEN [Concomitant]
     Dosage: UNK
  5. PRAVASTATIN [Concomitant]
     Dosage: UNK
  6. SPIRIVA [Concomitant]
     Dosage: UNK
  7. LEXOMIL [Concomitant]
     Dosage: UNK
  8. ATARAX                             /00058402/ [Concomitant]
     Dosage: UNK
  9. XATRAL [Concomitant]
     Dosage: SUSTAINED-RELEASE 10 MG
  10. PARIET [Concomitant]
     Dosage: UNK

REACTIONS (2)
  - Bronchopneumonia [Unknown]
  - Orchitis [Unknown]
